FAERS Safety Report 9217092 (Version 1)
Quarter: 2013Q2

REPORT INFORMATION
  Report Type: Spontaneous
  Country: US (occurrence: None)
  Receive Date: 20130404
  Receipt Date: 20130404
  Transmission Date: 20140414
  Serious: Yes (Hospitalization, Other)
  Sender: FDA-Public Use
  Company Number: 2013HINLIT0065

PATIENT
  Age: 33 Year
  Sex: Female

DRUGS (1)
  1. HYDROXYZINE [Suspect]
     Indication: PRURITUS
     Dosage: QD OR BID, PER DAY, ORAL
     Route: 048

REACTIONS (1)
  - Dermatitis contact [None]
